FAERS Safety Report 6845610-7 (Version None)
Quarter: 2010Q3

REPORT INFORMATION
  Report Type: 
  Country: None (occurrence: None)
  Receive Date: 20100715
  Receipt Date: 20070823
  Transmission Date: 20110219
  Serious: No
  Sender: FDA-Public Use
  Company Number: US-PFIZER INC-2007071995

PATIENT
  Sex: Male
  Weight: 68.2 kg

DRUGS (4)
  1. CHANTIX [Suspect]
     Indication: SMOKING CESSATION THERAPY
     Dates: start: 20070401
  2. LISINOPRIL [Concomitant]
  3. HERBAL NOS/MINERALS NOS [Concomitant]
  4. TRAMADOL [Concomitant]

REACTIONS (6)
  - ABNORMAL DREAMS [None]
  - AGITATION [None]
  - BACK PAIN [None]
  - DYSPEPSIA [None]
  - FATIGUE [None]
  - SOMNOLENCE [None]
